FAERS Safety Report 23034058 (Version 1)
Quarter: 2023Q4

REPORT INFORMATION
  Report Type: Spontaneous
  Country: US (occurrence: None)
  Receive Date: 20231005
  Receipt Date: 20231005
  Transmission Date: 20240110
  Serious: Yes (unspecified)
  Sender: FDA-Public Use
  Company Number: None

PATIENT
  Age: 61 Year
  Sex: Female
  Weight: 76.5 kg

DRUGS (4)
  1. DUPIXENT [Suspect]
     Active Substance: DUPILUMAB
     Dosage: OTHER QUANTITY : 1 INJECTION(S);?OTHER FREQUENCY : EVERY 2 WEEKS;?OTHER ROUTE : THIGH OR STOMACH;?
     Route: 050
     Dates: start: 20230104, end: 20230918
  2. ROSUVASTATIN [Concomitant]
     Active Substance: ROSUVASTATIN
  3. ASPIRIN [Concomitant]
     Active Substance: ASPIRIN
  4. PROPRANOLOL [Concomitant]
     Active Substance: PROPRANOLOL HYDROCHLORIDE

REACTIONS (4)
  - Arthralgia [None]
  - Vision blurred [None]
  - Dry eye [None]
  - Weight increased [None]

NARRATIVE: CASE EVENT DATE: 20231004
